FAERS Safety Report 12252341 (Version 2)
Quarter: 2016Q2

REPORT INFORMATION
  Report Type: Spontaneous
  Country: US (occurrence: US)
  Receive Date: 20160411
  Receipt Date: 20160621
  Transmission Date: 20160815
  Serious: No
  Sender: FDA-Public Use
  Company Number: US-BIOGEN-2016BI00213536

PATIENT
  Sex: Female

DRUGS (1)
  1. TECFIDERA [Suspect]
     Active Substance: DIMETHYL FUMARATE
     Indication: MULTIPLE SCLEROSIS
     Route: 065
     Dates: start: 20140715

REACTIONS (11)
  - Underdose [Unknown]
  - Intentional underdose [Not Recovered/Not Resolved]
  - General physical health deterioration [Not Recovered/Not Resolved]
  - Feeling abnormal [Not Recovered/Not Resolved]
  - Hypoaesthesia [Not Recovered/Not Resolved]
  - Stress [Not Recovered/Not Resolved]
  - Pain [Not Recovered/Not Resolved]
  - Dysphemia [Not Recovered/Not Resolved]
  - Speech disorder [Unknown]
  - Malaise [Not Recovered/Not Resolved]
  - Spinal disorder [Not Recovered/Not Resolved]
